FAERS Safety Report 9795551 (Version 1)
Quarter: 2014Q1

REPORT INFORMATION
  Report Type: Spontaneous
  Country: US (occurrence: US)
  Receive Date: 20140103
  Receipt Date: 20140103
  Transmission Date: 20141002
  Serious: Yes (Hospitalization)
  Sender: FDA-Public Use
  Company Number: US-BAYER-2014-000753

PATIENT
  Age: 22 Year
  Sex: Female
  Weight: 66.49 kg

DRUGS (5)
  1. YAZ [Suspect]
  2. YASMIN [Suspect]
  3. MINOCYCLINE [Concomitant]
     Indication: ACNE
     Dosage: UNK
     Dates: start: 20071214
  4. DIFFERIN [Concomitant]
     Dosage: 0.1 %, UNK
  5. IRON [Concomitant]

REACTIONS (1)
  - Pulmonary embolism [None]
